FAERS Safety Report 15353975 (Version 2)
Quarter: 2019Q1

REPORT INFORMATION
  Report Type: Report from Study
  Country: None (occurrence: US)
  Receive Date: 20180905
  Receipt Date: 20190329
  Transmission Date: 20190417
  Serious: Yes (Other)
  Sender: FDA-Public Use
  Company Number: US-ABBVIE-18K-163-2473240-00

PATIENT
  Sex: Male

DRUGS (1)
  1. HUMIRA [Suspect]
     Active Substance: ADALIMUMAB
     Indication: PSORIATIC ARTHROPATHY
     Route: 058

REACTIONS (7)
  - Loss of consciousness [Unknown]
  - Post procedural complication [Unknown]
  - Drug ineffective [Unknown]
  - Cardiac operation [Unknown]
  - Skin laceration [Unknown]
  - Bronchitis chronic [Unknown]
  - Musculoskeletal discomfort [Unknown]
